FAERS Safety Report 14869871 (Version 1)
Quarter: 2018Q2

REPORT INFORMATION
  Report Type: Spontaneous
  Country: FR (occurrence: FR)
  Receive Date: 20180509
  Receipt Date: 20180509
  Transmission Date: 20180711
  Serious: Yes (Other)
  Sender: FDA-Public Use
  Company Number: FR-MERCK KGAA-2047478

PATIENT
  Sex: Female

DRUGS (1)
  1. NOVOTHYROX [Suspect]
     Active Substance: LEVOTHYROXINE SODIUM
     Indication: PRODUCT USED FOR UNKNOWN INDICATION
     Dates: end: 20171016

REACTIONS (41)
  - Suicidal ideation [None]
  - Arrhythmia [Recovering/Resolving]
  - Breast pain [Recovering/Resolving]
  - Hyperacusis [None]
  - Emotional distress [Recovering/Resolving]
  - Paralysis [None]
  - Tearfulness [None]
  - Anxiety [None]
  - Vertigo [None]
  - Asthenia [Recovering/Resolving]
  - Depression [Recovering/Resolving]
  - Balance disorder [Recovering/Resolving]
  - Fatigue [None]
  - Vision blurred [None]
  - Urinary tract obstruction [None]
  - General physical health deterioration [Recovering/Resolving]
  - Hypokinesia [None]
  - Feeling abnormal [None]
  - Decreased interest [None]
  - Face oedema [Recovering/Resolving]
  - Swelling face [Recovering/Resolving]
  - Feeling cold [None]
  - Arthralgia [Recovering/Resolving]
  - Gait disturbance [None]
  - Migraine [None]
  - Erythema [None]
  - Hypersensitivity [None]
  - Tachycardia [Recovered/Resolved]
  - Nausea [None]
  - Insomnia [Recovering/Resolving]
  - Nodule [None]
  - Gastrointestinal disorder [None]
  - Hypertension [Recovering/Resolving]
  - Muscle spasms [None]
  - Joint swelling [Recovering/Resolving]
  - Impaired driving ability [None]
  - Crying [None]
  - Oedema peripheral [Recovering/Resolving]
  - Pruritus [None]
  - Diarrhoea [None]
  - Alopecia [Recovering/Resolving]
